FAERS Safety Report 8045437-7 (Version None)
Quarter: 2012Q1

REPORT INFORMATION
  Report Type: 
  Country: None (occurrence: None)
  Receive Date: 20120113
  Receipt Date: 20120109
  Transmission Date: 20120608
  Serious: Yes (Other)
  Sender: FDA-Public Use
  Company Number: US-TEVA-317094USA

PATIENT
  Age: 54 Year
  Sex: Female

DRUGS (2)
  1. ETANERCEPT [Suspect]
     Indication: TUMOUR NECROSIS
  2. METHOTREXATE [Suspect]

REACTIONS (2)
  - ANTIPHOSPHOLIPID SYNDROME [None]
  - SYSTEMIC LUPUS ERYTHEMATOSUS [None]
